FAERS Safety Report 23034854 (Version 1)
Quarter: 2023Q4

REPORT INFORMATION
  Report Type: Spontaneous
  Country: IT (occurrence: IT)
  Receive Date: 20231005
  Receipt Date: 20231005
  Transmission Date: 20240109
  Serious: Yes (Hospitalization)
  Sender: FDA-Public Use
  Company Number: None

PATIENT
  Age: 54 Year
  Sex: Female

DRUGS (3)
  1. OLUMIANT [Suspect]
     Active Substance: BARICITINIB
     Indication: Dermatitis atopic
     Dosage: 4 MG, UNKNOWN
     Route: 048
     Dates: start: 202211, end: 20230722
  2. CHOLECALCIFEROL [Concomitant]
     Active Substance: CHOLECALCIFEROL
     Indication: Product used for unknown indication
     Dosage: 30 [DRP], WEEKLY (1/W)
     Route: 048
  3. ALENDRONATO SODICO [Concomitant]
     Indication: Product used for unknown indication
     Dosage: 70 MG, WEEKLY (1/W)
     Route: 048

REACTIONS (8)
  - Normocytic anaemia [Unknown]
  - Hypertransaminasaemia [Unknown]
  - Asthenia [Unknown]
  - Decreased appetite [Unknown]
  - Arthralgia [Unknown]
  - Vertigo [Unknown]
  - Asthenia [Unknown]
  - Nausea [Unknown]

NARRATIVE: CASE EVENT DATE: 20230730
